FAERS Safety Report 18853216 (Version 1)
Quarter: 2021Q1

REPORT INFORMATION
  Report Type: Spontaneous
  Country: FR (occurrence: FR)
  Receive Date: 20210205
  Receipt Date: 20210205
  Transmission Date: 20210420
  Serious: Yes (Other)
  Sender: FDA-Public Use
  Company Number: FR-ANIPHARMA-2021-FR-000029

PATIENT
  Age: 71 Year
  Sex: Female

DRUGS (1)
  1. ANASTROZOLE. [Suspect]
     Active Substance: ANASTROZOLE
     Indication: BREAST CANCER
     Dosage: 1 MG UNK
     Route: 048
     Dates: start: 2017

REACTIONS (1)
  - Deafness [Unknown]

NARRATIVE: CASE EVENT DATE: 2018
